FAERS Safety Report 19624187 (Version 1)
Quarter: 2021Q3

REPORT INFORMATION
  Report Type: Report from Study
  Country: IN (occurrence: IN)
  Receive Date: 20210729
  Receipt Date: 20210729
  Transmission Date: 20211014
  Serious: Yes (Other)
  Sender: FDA-Public Use
  Company Number: IN-JNJFOC-20210744040

PATIENT

DRUGS (1)
  1. REMICADE [Suspect]
     Active Substance: INFLIXIMAB
     Indication: TYPE 1 LEPRA REACTION
     Route: 042

REACTIONS (3)
  - Adverse event [Unknown]
  - Off label use [Unknown]
  - Product use in unapproved indication [Unknown]
